FAERS Safety Report 6464530-3 (Version None)
Quarter: 2009Q4

REPORT INFORMATION
  Report Type: 
  Country: None (occurrence: None)
  Receive Date: 20091201
  Receipt Date: 20091119
  Transmission Date: 20100525
  Serious: Yes (Hospitalization)
  Sender: FDA-Public Use
  Company Number: DE-PFIZER INC-2008050256

PATIENT
  Age: 66 Year
  Sex: Female
  Weight: 110 kg

DRUGS (8)
  1. SUNITINIB MALATE [Suspect]
     Indication: BREAST CANCER
     Dosage: 25 MG, 1X/DAY
     Dates: start: 20080206
  2. DOCETAXEL [Suspect]
     Indication: BREAST CANCER
     Dosage: 60 MG/M2, EVERY 3 WEEKS
     Route: 042
     Dates: start: 20080205, end: 20080528
  3. ALPHAGAN [Concomitant]
  4. LORZAAR [Concomitant]
     Route: 048
  5. XALATAN [Concomitant]
  6. METOPROLOL SUCCINATE [Concomitant]
     Route: 048
  7. PRAVASTATIN SODIUM [Concomitant]
     Route: 048
  8. TORASEMIDE [Concomitant]
     Route: 048
     Dates: end: 20080603

REACTIONS (3)
  - CONTUSION [None]
  - FALL [None]
  - SKIN TOXICITY [None]
